FAERS Safety Report 20339875 (Version 3)
Quarter: 2022Q3

REPORT INFORMATION
  Report Type: Spontaneous
  Country: US (occurrence: US)
  Receive Date: 20220117
  Receipt Date: 20220812
  Transmission Date: 20221027
  Serious: No
  Sender: FDA-Public Use
  Company Number: US-GLAXOSMITHKLINE-USCH2022001949

PATIENT
  Age: 79 Year
  Sex: Female

DRUGS (1)
  1. ADVIL LIQUI-GELS [Suspect]
     Active Substance: IBUPROFEN
     Indication: Arthritis
     Dosage: UNK
     Dates: start: 20211226

REACTIONS (2)
  - Wrong technique in product usage process [Recovered/Resolved]
  - Product complaint [Unknown]
